FAERS Safety Report 4617271-9 (Version None)
Quarter: 2005Q1

REPORT INFORMATION
  Report Type: 
  Country: None (occurrence: None)
  Receive Date: 20050318
  Receipt Date: 20050302
  Transmission Date: 20050727
  Serious: Yes (Death)
  Sender: FDA-Public Use
  Company Number: L04-USA-07403-07

PATIENT
  Age: 46 Year
  Sex: Female

DRUGS (5)
  1. CELEXA [Suspect]
  2. ACETAMINOPHEN AND HYDROCODONE BITARTRATE [Suspect]
  3. ACETAMINOPHEN W/ CODEINE [Suspect]
  4. HYDROXYZINE [Suspect]
  5. NAPROXEN [Suspect]

REACTIONS (8)
  - COMPLETED SUICIDE [None]
  - CONFUSIONAL STATE [None]
  - DRUG SCREEN POSITIVE [None]
  - HEART RATE INCREASED [None]
  - HEPATIC FAILURE [None]
  - INTENTIONAL MISUSE [None]
  - LETHARGY [None]
  - PLATELET COUNT DECREASED [None]
